FAERS Safety Report 5671975-8 (Version None)
Quarter: 2008Q1

REPORT INFORMATION
  Report Type: 
  Country: None (occurrence: None)
  Receive Date: 20080317
  Receipt Date: 20080317
  Transmission Date: 20080703
  Serious: Yes (Other)
  Sender: FDA-Public Use
  Company Number: None

PATIENT
  Age: 52 Year
  Sex: Female
  Weight: 63.5036 kg

DRUGS (1)
  1. EFFEXOR XR [Suspect]
     Indication: DEPRESSION
     Dosage: 37.5 MG DAILY PO
     Route: 048
     Dates: start: 20060415, end: 20080220

REACTIONS (6)
  - ANXIETY [None]
  - BLOOD PRESSURE INCREASED [None]
  - MUSCLE TWITCHING [None]
  - SEXUAL DYSFUNCTION [None]
  - TACHYCARDIA [None]
  - WEIGHT INCREASED [None]
